FAERS Safety Report 5353978-6 (Version None)
Quarter: 2007Q2

REPORT INFORMATION
  Report Type: 
  Country: None (occurrence: None)
  Receive Date: 20070608
  Receipt Date: 20070608
  Transmission Date: 20071010
  Serious: Yes (Hospitalization)
  Sender: FDA-Public Use
  Company Number: None

PATIENT
  Sex: Female

DRUGS (1)
  1. METHYLENE BLUE INJECTION 1%  TAYLOR PHARMACEUTICALS [Suspect]
     Indication: BREAST CANCER
     Dosage: UNKNOWN
     Dates: start: 20070430, end: 20070430

REACTIONS (2)
  - POST PROCEDURAL COMPLICATION [None]
  - WOUND NECROSIS [None]
